FAERS Safety Report 14646160 (Version 1)
Quarter: 2018Q1

REPORT INFORMATION
  Report Type: Spontaneous
  Country: US (occurrence: US)
  Receive Date: 20180316
  Receipt Date: 20180316
  Transmission Date: 20180509
  Serious: Yes (Other)
  Sender: FDA-Public Use
  Company Number: US-INGENUS PHARMACEUTICALS NJ, LLC-ING201803-000198

PATIENT
  Age: 58 Year
  Sex: Male

DRUGS (1)
  1. CARISOPRODOL, ASPIRIN AND CODEINE PHOSPHATE [Suspect]
     Active Substance: ASPIRIN\CARISOPRODOL\CODEINE PHOSPHATE
     Dosage: 3 HEADACHE POWDERS

REACTIONS (4)
  - Duodenal ulcer [Unknown]
  - Haematemesis [Unknown]
  - Drug abuse [Unknown]
  - Melaena [Unknown]
